FAERS Safety Report 4808143-5 (Version None)
Quarter: 2005Q4

REPORT INFORMATION
  Report Type: 
  Country: None (occurrence: None)
  Receive Date: 20051021
  Receipt Date: 20050301
  Transmission Date: 20060501
  Serious: No
  Sender: FDA-Public Use
  Company Number: USA050392410

PATIENT
  Age: 16 Year
  Sex: Female

DRUGS (1)
  1. ZYPREXA [Suspect]
     Indication: SCHIZOPHRENIA
     Dosage: 5 MG/DAILY

REACTIONS (2)
  - BREAST ENGORGEMENT [None]
  - MENSTRUATION IRREGULAR [None]
